FAERS Safety Report 13944302 (Version 1)
Quarter: 2017Q3

REPORT INFORMATION
  Report Type: Spontaneous
  Country: US (occurrence: US)
  Receive Date: 20170907
  Receipt Date: 20170907
  Transmission Date: 20171128
  Serious: No
  Sender: FDA-Public Use
  Company Number: US-ROCHE-1298750

PATIENT
  Sex: Female

DRUGS (1)
  1. RITUXAN [Suspect]
     Active Substance: RITUXIMAB
     Indication: MULTIPLE SCLEROSIS
     Route: 065
     Dates: start: 20131023

REACTIONS (5)
  - Hypoaesthesia [Unknown]
  - Chest discomfort [Unknown]
  - Movement disorder [Not Recovered/Not Resolved]
  - Pyrexia [Unknown]
  - Multiple sclerosis [Unknown]
